FAERS Safety Report 13563928 (Version 2)
Quarter: 2017Q2

REPORT INFORMATION
  Report Type: Spontaneous
  Country: US (occurrence: US)
  Receive Date: 20170519
  Receipt Date: 20170627
  Transmission Date: 20170830
  Serious: Yes (Death, Hospitalization, Other)
  Sender: FDA-Public Use
  Company Number: US-AMGEN-USASP2017048823

PATIENT
  Age: 51 Year
  Sex: Male
  Weight: 126 kg

DRUGS (18)
  1. BLINCYTO [Suspect]
     Active Substance: BLINATUMOMAB
     Indication: ACUTE LYMPHOCYTIC LEUKAEMIA
     Dosage: 28 MUG, QD
     Route: 042
     Dates: start: 20170314, end: 20170405
  2. BLINCYTO [Suspect]
     Active Substance: BLINATUMOMAB
     Dosage: 9 MUG, QD
     Route: 042
  3. 6 MP [Concomitant]
     Active Substance: MERCAPTOPURINE
     Dosage: 50 MG, TID
     Route: 048
  4. ACYCLOVIR. [Concomitant]
     Active Substance: ACYCLOVIR
     Dosage: 400 MG, BID
     Route: 048
  5. CLARITIN [Concomitant]
     Active Substance: LORATADINE
     Dosage: 10 MG, QD
     Route: 048
  6. XANAX [Concomitant]
     Active Substance: ALPRAZOLAM
     Indication: ANXIETY
     Dosage: 0.5 MG, TID
     Route: 048
  7. DILTIAZEM HCL [Concomitant]
     Active Substance: DILTIAZEM HYDROCHLORIDE
     Indication: ATRIAL FLUTTER
     Dosage: 180 MG, QD
     Route: 048
  8. METOPROLOL TARTRATE. [Concomitant]
     Active Substance: METOPROLOL TARTRATE
     Dosage: 25 MG, BID
     Route: 048
  9. PROCHLORPERAZINE MALEATE. [Concomitant]
     Active Substance: PROCHLORPERAZINE MALEATE
     Indication: NAUSEA
     Dosage: 10 MG, Q6H
     Route: 048
  10. VORICONAZOLE. [Concomitant]
     Active Substance: VORICONAZOLE
     Dosage: 200 MG, Q12H
     Route: 048
  11. CYTARABINE. [Concomitant]
     Active Substance: CYTARABINE
     Dosage: UNK
  12. ALLOPURINOL. [Concomitant]
     Active Substance: ALLOPURINOL
     Dosage: 300 MG, QD
     Route: 048
  13. PANTOPRAZOLE SODIUM. [Concomitant]
     Active Substance: PANTOPRAZOLE SODIUM
     Dosage: 40 MG, BID
     Route: 048
  14. GABAPENTIN. [Concomitant]
     Active Substance: GABAPENTIN
     Dosage: 100 MG, BID
     Route: 048
  15. METHOTREXATE SODIUM. [Concomitant]
     Active Substance: METHOTREXATE SODIUM
     Dosage: 2.5 MG, AS NECESSARY
     Route: 048
  16. LOSARTAN W/HIDROCLOROTIAZIDA [Concomitant]
     Dosage: 12.5 TO 100 MG, QD
     Route: 048
  17. LEVOTHYROXINE SODIUM. [Concomitant]
     Active Substance: LEVOTHYROXINE SODIUM
     Dosage: 50 MUG, QD
     Route: 048
  18. MELATONIN W/PYRIDOXINE HYDROCHLORIDE [Concomitant]
     Dosage: 3 TO 10 MG/5 TO 1 MG, QD
     Route: 048

REACTIONS (2)
  - Febrile neutropenia [Unknown]
  - Blood bilirubin increased [Fatal]

NARRATIVE: CASE EVENT DATE: 2017
